FAERS Safety Report 9378663 (Version 1)
Quarter: 2013Q2

REPORT INFORMATION
  Report Type: Spontaneous
  Country: DE (occurrence: None)
  Receive Date: 20130626
  Receipt Date: 20130626
  Transmission Date: 20140414
  Serious: Yes (Other)
  Sender: FDA-Public Use
  Company Number: 2013/131

PATIENT
  Age: 46 Year
  Sex: Female

DRUGS (3)
  1. VENLAFAXINE [Suspect]
     Indication: MAJOR DEPRESSION
     Route: 048
     Dates: start: 201110
  2. TRIMETHOPRIN [Concomitant]
  3. SULFAMETHOXAZOLE (COTRIMOXAZOLE (R)) [Concomitant]

REACTIONS (5)
  - Antidepressant drug level above therapeutic [None]
  - Tension [None]
  - Tremor [None]
  - Therapy responder [None]
  - Cystitis [None]
